FAERS Safety Report 10877520 (Version 1)
Quarter: 2015Q1

REPORT INFORMATION
  Report Type: Spontaneous
  Country: CA (occurrence: CA)
  Receive Date: 20150302
  Receipt Date: 20150302
  Transmission Date: 20150721
  Serious: Yes (Other)
  Sender: FDA-Public Use
  Company Number: CA-SHIRE-CA201501456

PATIENT
  Sex: Male
  Weight: 24.94 kg

DRUGS (2)
  1. INTUNIV [Suspect]
     Active Substance: GUANFACINE HYDROCHLORIDE
     Indication: ATTENTION DEFICIT/HYPERACTIVITY DISORDER
     Dosage: 1 MG, UNKNOWN
     Route: 048
  2. VYVANSE [Concomitant]
     Active Substance: LISDEXAMFETAMINE DIMESYLATE
     Indication: PRODUCT USED FOR UNKNOWN INDICATION
     Dosage: UNK, UNKNOWN
     Route: 048

REACTIONS (11)
  - Dry throat [Unknown]
  - Dry mouth [Unknown]
  - Erythema [Unknown]
  - Lip dry [Unknown]
  - Oral mucosal erythema [Unknown]
  - Chapped lips [Unknown]
  - Migraine [Unknown]
  - Rash generalised [Unknown]
  - Pruritus [Unknown]
  - Abdominal pain upper [Unknown]
  - Oropharyngeal pain [Unknown]
